FAERS Safety Report 23075525 (Version 1)
Quarter: 2023Q4

REPORT INFORMATION
  Report Type: Spontaneous
  Country: US (occurrence: US)
  Receive Date: 20231017
  Receipt Date: 20231017
  Transmission Date: 20240109
  Serious: Yes (Hospitalization)
  Sender: FDA-Public Use
  Company Number: US-TEVA-2023-US-2935201

PATIENT
  Age: 8 Year
  Sex: Female

DRUGS (22)
  1. METHYLPREDNISOLONE [Suspect]
     Active Substance: METHYLPREDNISOLONE
     Indication: Inflammation
     Dosage: RECEIVED ON POD 3 TO 5
     Route: 042
  2. METHYLPREDNISOLONE [Suspect]
     Active Substance: METHYLPREDNISOLONE
     Dosage: RECEIVED ON POD 6
     Route: 042
  3. METHYLPREDNISOLONE [Suspect]
     Active Substance: METHYLPREDNISOLONE
     Dosage: RECEIVED ON POD 7 AND 8
     Route: 042
  4. METHYLPREDNISOLONE [Suspect]
     Active Substance: METHYLPREDNISOLONE
     Dosage: RECEIVED ON POD 9 AND 10
     Route: 042
  5. VANCOMYCIN [Concomitant]
     Active Substance: VANCOMYCIN
     Indication: Post procedural infection
     Dosage: RECEIVED 3 SETS
     Route: 050
  6. VANCOMYCIN [Concomitant]
     Active Substance: VANCOMYCIN
     Indication: Eye abscess
     Dosage: 2000 MILLIGRAM DAILY; FOR 17 DAYS
     Route: 042
  7. VANCOMYCIN [Concomitant]
     Active Substance: VANCOMYCIN
     Indication: Cutibacterium acnes infection
  8. CEFTAZIDIME [Concomitant]
     Active Substance: CEFTAZIDIME
     Indication: Post procedural infection
     Dosage: RECEIVED 3 SETS
     Route: 050
  9. CEFTAZIDIME [Concomitant]
     Active Substance: CEFTAZIDIME
     Indication: Cutibacterium acnes infection
     Dosage: 6000 MILLIGRAM DAILY; FOR 17 DAYS
     Route: 042
  10. CEFTAZIDIME [Concomitant]
     Active Substance: CEFTAZIDIME
     Indication: Eye abscess
  11. DEXAMETHASONE [Concomitant]
     Active Substance: DEXAMETHASONE
     Indication: Post procedural infection
     Dosage: RECEIVED SINGLE INJECTION
     Route: 050
  12. DEXAMETHASONE [Concomitant]
     Active Substance: DEXAMETHASONE
     Indication: Eye abscess
  13. DEXAMETHASONE [Concomitant]
     Active Substance: DEXAMETHASONE
     Indication: Cutibacterium acnes infection
  14. LINEZOLID [Concomitant]
     Active Substance: LINEZOLID
     Indication: Post procedural infection
     Dosage: 30 MG/KG DAILY; FOR 17 DAYS
     Route: 042
  15. LINEZOLID [Concomitant]
     Active Substance: LINEZOLID
     Indication: Eye abscess
  16. LINEZOLID [Concomitant]
     Active Substance: LINEZOLID
     Indication: Cutibacterium acnes infection
  17. CEFEPIME [Concomitant]
     Active Substance: CEFEPIME HYDROCHLORIDE
     Indication: Post procedural infection
     Dosage: 4000 MILLIGRAM DAILY; FOR 17 DAYS
     Route: 042
  18. CEFEPIME [Concomitant]
     Active Substance: CEFEPIME HYDROCHLORIDE
     Indication: Eye abscess
  19. CEFEPIME [Concomitant]
     Active Substance: CEFEPIME HYDROCHLORIDE
     Indication: Cutibacterium acnes infection
  20. MEROPENEM [Concomitant]
     Active Substance: MEROPENEM
     Indication: Post procedural infection
     Dosage: 120 MG/KG DAILY; FOR 17 DAYS
     Route: 042
  21. MEROPENEM [Concomitant]
     Active Substance: MEROPENEM
     Indication: Cutibacterium acnes infection
  22. MEROPENEM [Concomitant]
     Active Substance: MEROPENEM
     Indication: Eye abscess

REACTIONS (2)
  - Drug withdrawal syndrome [Unknown]
  - Retinal vasculitis [Recovered/Resolved]
